FAERS Safety Report 5939787-5 (Version None)
Quarter: 2008Q4

REPORT INFORMATION
  Report Type: 
  Country: None (occurrence: None)
  Receive Date: 20081030
  Receipt Date: 20081030
  Transmission Date: 20090506
  Serious: Yes (Other)
  Sender: FDA-Public Use
  Company Number: None

PATIENT
  Sex: Female
  Weight: 62 kg

DRUGS (1)
  1. VENLAFAXINE HCL [Suspect]
     Indication: ANXIETY
     Dosage: ONE PO QD
     Route: 048
     Dates: start: 20060101

REACTIONS (1)
  - NAUSEA [None]
